FAERS Safety Report 8555627-2 (Version None)
Quarter: 2012Q3

REPORT INFORMATION
  Report Type: 
  Country: None (occurrence: None)
  Receive Date: 20120731
  Receipt Date: 20120717
  Transmission Date: 20120928
  Serious: Yes (Hospitalization, Other)
  Sender: FDA-Public Use
  Company Number: US-ELI_LILLY_AND_COMPANY-US201205004251

PATIENT
  Age: 58 Year
  Sex: Female

DRUGS (2)
  1. CYMBALTA [Suspect]
     Indication: DEPRESSION
     Dosage: 60 MG, UNK
     Dates: start: 20120420, end: 20120426
  2. ASPIRIN [Concomitant]

REACTIONS (16)
  - LOSS OF CONSCIOUSNESS [None]
  - HAEMORRHAGE [None]
  - PRURITUS [None]
  - DRUG INEFFECTIVE [None]
  - ERYTHEMA [None]
  - ABDOMINAL PAIN UPPER [None]
  - HEAD INJURY [None]
  - DIZZINESS [None]
  - INFLAMMATION [None]
  - FALL [None]
  - HYPERSENSITIVITY [None]
  - SCREAMING [None]
  - MUSCULOSKELETAL PAIN [None]
  - PELVIC PAIN [None]
  - THINKING ABNORMAL [None]
  - TACHYPHRENIA [None]
